FAERS Safety Report 20590634 (Version 1)
Quarter: 2022Q1

REPORT INFORMATION
  Report Type: Spontaneous
  Country: US (occurrence: None)
  Receive Date: 20220308
  Receipt Date: 20220308
  Transmission Date: 20220423
  Serious: No
  Sender: FDA-Public Use
  Company Number: None

PATIENT

DRUGS (1)
  1. CANNABIDIOL\HERBALS [Suspect]
     Active Substance: CANNABIDIOL\HERBALS

REACTIONS (6)
  - Throat irritation [None]
  - Burning sensation [None]
  - Device power source issue [None]
  - Device issue [None]
  - Product counterfeit [None]
  - Device catching fire [None]
